FAERS Safety Report 8555486-8 (Version None)
Quarter: 2012Q3

REPORT INFORMATION
  Report Type: 
  Country: None (occurrence: None)
  Receive Date: 20120731
  Receipt Date: 20110825
  Transmission Date: 20120928
  Serious: No
  Sender: FDA-Public Use
  Company Number: US-ASTRAZENECA-2011SE12438

PATIENT
  Age: 40 Year
  Sex: Female
  Weight: 61.7 kg

DRUGS (12)
  1. IPAROPIUM BROMIDE [Concomitant]
     Indication: ASTHMA
  2. ALBUTEROL [Concomitant]
     Indication: ASTHMA
  3. REGLAN [Concomitant]
     Indication: VOMITING
  4. CLONIDINE [Concomitant]
     Indication: BLOOD PRESSURE
  5. TEGRETOL [Concomitant]
  6. PRILOSEC [Concomitant]
     Indication: GASTRIC DISORDER
  7. MEDROXY [Concomitant]
     Indication: HORMONE REPLACEMENT THERAPY
  8. BROVANA [Concomitant]
     Indication: ASTHMA
  9. ESTRODIAL [Concomitant]
     Indication: HORMONE REPLACEMENT THERAPY
  10. XANXEX [Concomitant]
     Indication: ANXIETY
  11. SEROQUEL XR [Suspect]
     Indication: BIPOLAR DISORDER
     Route: 048
     Dates: start: 20020101
  12. BUDESONIDE [Concomitant]
     Indication: ASTHMA

REACTIONS (9)
  - EMOTIONAL DISORDER [None]
  - AGORAPHOBIA [None]
  - ABDOMINAL DISCOMFORT [None]
  - INSOMNIA [None]
  - HYPERHIDROSIS [None]
  - RHINORRHOEA [None]
  - DRUG DOSE OMISSION [None]
  - DIARRHOEA [None]
  - MALAISE [None]
